FAERS Safety Report 8847120 (Version 1)
Quarter: 2012Q4

REPORT INFORMATION
  Report Type: Spontaneous
  Country: KP (occurrence: None)
  Receive Date: 20121016
  Receipt Date: 20121016
  Transmission Date: 20130627
  Serious: Yes (Hospitalization)
  Sender: FDA-Public Use
  Company Number: US-2012-10937

PATIENT
  Age: 64 Year
  Sex: Female

DRUGS (3)
  1. CILOSTAZOL [Suspect]
     Route: 048
  2. CLOPIDOGREL (CLOPIDOGREL SULFATE) [Concomitant]
  3. ASPIRIN [Concomitant]

REACTIONS (2)
  - Arterial restenosis [None]
  - Arteriovenous fistula [None]
